FAERS Safety Report 9570329 (Version 2)
Quarter: 2013Q3

REPORT INFORMATION
  Report Type: Spontaneous
  Country: US (occurrence: US)
  Receive Date: 20130930
  Receipt Date: 20130930
  Transmission Date: 20140515
  Serious: Yes (Other)
  Sender: FDA-Public Use
  Company Number: US-AMGEN-USASP2013054392

PATIENT
  Age: 50 Year
  Sex: Female
  Weight: 64.85 kg

DRUGS (7)
  1. ENBREL [Suspect]
     Indication: PRODUCT USED FOR UNKNOWN INDICATION
     Dosage: 50 MG, QWK
     Route: 058
  2. MELOXICAM [Concomitant]
     Dosage: 7.5 MG, UNK
  3. METHOTREXATE [Concomitant]
     Dosage: 2.5 MG, UNK
  4. DOVONEX [Concomitant]
     Dosage: 0.005 %, UNK
  5. ACTAMIN [Concomitant]
     Dosage: 500 MG, UNK
  6. ALAVERT [Concomitant]
     Dosage: 10 MG, UNK
  7. DUREZOL [Concomitant]
     Dosage: 0.05 %, UNK

REACTIONS (7)
  - Uveitis [Not Recovered/Not Resolved]
  - Oligomenorrhoea [Unknown]
  - Emotional disorder [Unknown]
  - Muscle spasms [Unknown]
  - Headache [Unknown]
  - Sinusitis [Unknown]
  - Gingival abscess [Not Recovered/Not Resolved]
